FAERS Safety Report 4716802-8 (Version None)
Quarter: 2005Q3

REPORT INFORMATION
  Report Type: 
  Country: None (occurrence: None)
  Receive Date: 20050714
  Receipt Date: 20050624
  Transmission Date: 20060218
  Serious: Yes (Other)
  Sender: FDA-Public Use
  Company Number: 2005BH000627

PATIENT
  Age: 52 Year
  Sex: Male

DRUGS (7)
  1. 0.9% SODIUM CHLORIDE INJECTION IN PLASTIC CONTAINER (SODIUM CHLORIDE) [Suspect]
     Dosage: 500 MG; IV
     Route: 042
     Dates: start: 20050413, end: 20050528
  2. VANCOMYCIN [Suspect]
     Dosage: 500 MG; 4X A DAY; IV
     Route: 042
  3. ROFECIN [Concomitant]
  4. VANCOMYCIN [Concomitant]
  5. ANTAK [Concomitant]
  6. LUFTAL [Concomitant]
  7. DIGESAN [Concomitant]

REACTIONS (5)
  - CATHETER RELATED INFECTION [None]
  - PALLOR [None]
  - PYREXIA [None]
  - SERRATIA INFECTION [None]
  - TREMOR [None]
